FAERS Safety Report 5123545-8 (Version None)
Quarter: 2006Q3

REPORT INFORMATION
  Report Type: 
  Country: None (occurrence: None)
  Receive Date: 20060801
  Receipt Date: 20060420
  Transmission Date: 20061208
  Serious: Yes (Other)
  Sender: FDA-Public Use
  Company Number: 145411USA

PATIENT

DRUGS (1)
  1. OXYCODONE HCL [Suspect]
     Dosage: 80 MILLIGRAM
     Dates: start: 20060407

REACTIONS (1)
  - CONVULSION [None]
